FAERS Safety Report 10286040 (Version 3)
Quarter: 2014Q3

REPORT INFORMATION
  Report Type: Spontaneous
  Country: US (occurrence: US)
  Receive Date: 20140709
  Receipt Date: 20140810
  Transmission Date: 20150326
  Serious: No
  Sender: FDA-Public Use
  Company Number: US-009507513-1407USA003924

PATIENT
  Age: 64 Year
  Sex: Female
  Weight: 83.45 kg

DRUGS (2)
  1. PREVACID [Concomitant]
     Active Substance: LANSOPRAZOLE
  2. DULERA [Suspect]
     Active Substance: FORMOTEROL FUMARATE DIHYDRATE\MOMETASONE FUROATE
     Indication: ASTHMA
     Dosage: 2 PUFF, BID
     Route: 055
     Dates: start: 20140630, end: 20140714

REACTIONS (10)
  - Oropharyngeal pain [Recovered/Resolved]
  - Anxiety [Recovered/Resolved]
  - Medication error [Unknown]
  - Eye pain [Recovered/Resolved]
  - Swollen tongue [Recovered/Resolved]
  - Discomfort [Recovered/Resolved]
  - Headache [Recovered/Resolved]
  - Fatigue [Recovered/Resolved]
  - Tongue disorder [Recovered/Resolved]
  - Cough [Not Recovered/Not Resolved]

NARRATIVE: CASE EVENT DATE: 20140630
